FAERS Safety Report 4958118-0 (Version None)
Quarter: 2006Q1

REPORT INFORMATION
  Report Type: 
  Country: None (occurrence: None)
  Receive Date: 20060324
  Receipt Date: 20060314
  Transmission Date: 20060701
  Serious: Yes (Hospitalization)
  Sender: FDA-Public Use
  Company Number: GXKR2006JP01197

PATIENT
  Age: 27 Year
  Sex: Male

DRUGS (6)
  1. CO-TRIMOXAZOLE  (SULFAMETHOXAZOLE, TRIMETHOPRIM) [Suspect]
     Indication: OPPORTUNISTIC INFECTION
     Dosage: 400/80 MG, ORAL
     Route: 048
     Dates: start: 20040316
  2. PREDNISOLONE [Concomitant]
  3. ACETAMINOPHEN [Concomitant]
  4. GATIFLOXACIN [Concomitant]
  5. LOXOPROFEN                 (LOXOPROFEN) [Concomitant]
  6. AZITHROMYCIN [Concomitant]

REACTIONS (9)
  - ALANINE AMINOTRANSFERASE INCREASED [None]
  - BLOOD LACTATE DEHYDROGENASE INCREASED [None]
  - DISEASE RECURRENCE [None]
  - DRUG HYPERSENSITIVITY [None]
  - HEPATOSPLENOMEGALY [None]
  - HERPES SIMPLEX SEROLOGY POSITIVE [None]
  - HUMAN HERPESVIRUS 6 INFECTION [None]
  - LYMPHADENOPATHY [None]
  - LYMPHOCYTE STIMULATION TEST POSITIVE [None]
